FAERS Safety Report 24448436 (Version 2)
Quarter: 2024Q4

REPORT INFORMATION
  Report Type: Report from Study
  Country: GR (occurrence: GR)
  Receive Date: 20241017
  Receipt Date: 20241123
  Transmission Date: 20250114
  Serious: Yes (Hospitalization, Other)
  Sender: EMD SERONO INC
  Company Number: GR-Merck Healthcare KGaA-2024054137

PATIENT
  Age: 46 Year
  Sex: Male

DRUGS (1)
  1. REBIF [Suspect]
     Active Substance: INTERFERON BETA-1A
     Indication: Multiple sclerosis
     Dosage: FORM OF ADMIN: CARTRIDGE
     Dates: start: 20150302, end: 202409

REACTIONS (3)
  - Acute myocardial infarction [Recovering/Resolving]
  - Coronary artery occlusion [Unknown]
  - Blood cholesterol increased [Unknown]

NARRATIVE: CASE EVENT DATE: 20240630
